FAERS Safety Report 22000445 (Version 1)
Quarter: 2023Q1

REPORT INFORMATION
  Report Type: Spontaneous
  Country: US (occurrence: None)
  Receive Date: 20230215
  Receipt Date: 20230215
  Transmission Date: 20230418
  Serious: No
  Sender: FDA-Public Use
  Company Number: None

PATIENT
  Age: 40 Year
  Sex: Male
  Weight: 65.7 kg

DRUGS (2)
  1. LACOSAMIDE [Suspect]
     Active Substance: LACOSAMIDE
     Indication: Epilepsy
     Dosage: FREQUENCY : TWICE A DAY;?
     Route: 048
     Dates: start: 20230201
  2. CLOBAZAM [Concomitant]
     Active Substance: CLOBAZAM
     Dates: start: 20210903

REACTIONS (6)
  - Product substitution issue [None]
  - Drug intolerance [None]
  - Fatigue [None]
  - Dizziness [None]
  - Tremor [None]
  - Quality of life decreased [None]

NARRATIVE: CASE EVENT DATE: 20230201
